FAERS Safety Report 23989876 (Version 1)
Quarter: 2024Q2

REPORT INFORMATION
  Report Type: Spontaneous
  Country: AR (occurrence: AR)
  Receive Date: 20240619
  Receipt Date: 20240619
  Transmission Date: 20240715
  Serious: Yes (Other)
  Sender: FDA-Public Use
  Company Number: AR-PFIZER INC-202400194945

PATIENT
  Age: 79 Year
  Sex: Female

DRUGS (2)
  1. IBRANCE [Suspect]
     Active Substance: PALBOCICLIB
     Indication: Breast cancer metastatic
     Dosage: 3X1 SCHEME
     Dates: start: 20191115
  2. FULVESTRANT [Concomitant]
     Active Substance: FULVESTRANT

REACTIONS (2)
  - Bone fissure [Unknown]
  - Pain [Unknown]

NARRATIVE: CASE EVENT DATE: 20240201
